FAERS Safety Report 5224835-0 (Version None)
Quarter: 2007Q1

REPORT INFORMATION
  Report Type: 
  Country: None (occurrence: None)
  Receive Date: 20070131
  Receipt Date: 20070117
  Transmission Date: 20070707
  Serious: Yes (Hospitalization, Other)
  Sender: FDA-Public Use
  Company Number: US-ELI_LILLY_AND_COMPANY-US200701003406

PATIENT
  Age: 67 Year
  Sex: Female
  Weight: 58.049 kg

DRUGS (5)
  1. FORTEO [Suspect]
     Indication: OSTEOPOROSIS
     Dosage: 20 UG, DAILY (1/D)
     Dates: start: 20041201, end: 20061101
  2. CALCIUM [Concomitant]
  3. ERGOCALCIFEROL (VITAMIN D) [Concomitant]
  4. ADVAIR DISKUS 100/50 [Concomitant]
  5. PROTONIX [Concomitant]
     Dosage: 40 MG, UNK

REACTIONS (12)
  - ASTHENIA [None]
  - DYSPNOEA [None]
  - FATIGUE [None]
  - HEART RATE INCREASED [None]
  - HYPOTENSION [None]
  - LUNG NEOPLASM MALIGNANT [None]
  - METASTASES TO BONE [None]
  - METASTASES TO LYMPH NODES [None]
  - NEOPLASM PROGRESSION [None]
  - OBSTRUCTIVE AIRWAYS DISORDER [None]
  - OXYGEN SATURATION DECREASED [None]
  - THYROID DISORDER [None]
